FAERS Safety Report 17791938 (Version 1)
Quarter: 2020Q2

REPORT INFORMATION
  Report Type: Spontaneous
  Country: US (occurrence: US)
  Receive Date: 20200515
  Receipt Date: 20200515
  Transmission Date: 20200714
  Serious: No
  Sender: FDA-Public Use
  Company Number: US-PFIZER INC-2020194357

PATIENT
  Age: 29 Year
  Sex: Female

DRUGS (1)
  1. XELJANZ XR [Suspect]
     Active Substance: TOFACITINIB CITRATE
     Indication: PSORIATIC ARTHROPATHY
     Dosage: 11 MG, DAILY
     Route: 048
     Dates: start: 201912

REACTIONS (7)
  - Cough [Unknown]
  - Headache [Unknown]
  - Rhinorrhoea [Unknown]
  - Nasopharyngitis [Unknown]
  - Lacrimation increased [Unknown]
  - Oropharyngeal pain [Unknown]
  - Pyrexia [Unknown]

NARRATIVE: CASE EVENT DATE: 202005
